FAERS Safety Report 23947275 (Version 3)
Quarter: 2025Q1

REPORT INFORMATION
  Report Type: Report from Study
  Country: US (occurrence: US)
  Receive Date: 20240606
  Receipt Date: 20250321
  Transmission Date: 20250408
  Serious: Yes (Hospitalization, Other)
  Sender: ALEXION PHARMACEUTICALS
  Company Number: 2024A128080

PATIENT
  Age: 56 Year
  Weight: 181.7 kg

DRUGS (11)
  1. LOKELMA [Suspect]
     Active Substance: SODIUM ZIRCONIUM CYCLOSILICATE
     Indication: Adenocarcinoma
  2. CARBOPLATIN [Suspect]
     Active Substance: CARBOPLATIN
     Indication: Adenocarcinoma
     Dosage: 30 MILLIGRAM/KILOGRAM, Q3W
  3. VUDALIMAB [Suspect]
     Active Substance: VUDALIMAB
     Indication: Adenocarcinoma
     Dosage: 10 MILLIGRAM/KILOGRAM, Q2W
  4. JEVTANA [Suspect]
     Active Substance: CABAZITAXEL
     Indication: Adenocarcinoma
     Dosage: 15MG/M2
  5. JEVTANA [Suspect]
     Active Substance: CABAZITAXEL
     Dosage: 30 MILLIGRAM/KILOGRAM, Q3W
  6. VITAMIN B COMPLEX [Concomitant]
     Active Substance: CYANOCOBALAMIN\DEXPANTHENOL\NIACINAMIDE\PYRIDOXINE HYDROCHLORIDE\RIBOFLAVIN 5^-PHOSPHATE SODIUM\THIA
  7. CHOLECALCIFEROL [Concomitant]
     Active Substance: CHOLECALCIFEROL
  8. GABAPENTIN [Concomitant]
     Active Substance: GABAPENTIN
  9. VITAMINS [Concomitant]
     Active Substance: VITAMINS
  10. ONDANSETRON [Concomitant]
     Active Substance: ONDANSETRON
  11. OXYCODONE [Concomitant]
     Active Substance: OXYCODONE

REACTIONS (16)
  - Alanine aminotransferase increased [Not Recovered/Not Resolved]
  - Hyponatraemia [Not Recovered/Not Resolved]
  - Pyrexia [Unknown]
  - Lymphocyte count decreased [Unknown]
  - Sepsis [Unknown]
  - Pulmonary embolism [Recovered/Resolved]
  - Haematoma [Not Recovered/Not Resolved]
  - Hypertransaminasaemia [Recovering/Resolving]
  - Ascites [Unknown]
  - Systemic inflammatory response syndrome [Recovered/Resolved]
  - Malignant neoplasm progression [Unknown]
  - Hospitalisation [Unknown]
  - Pyrexia [Unknown]
  - Hypotension [Unknown]
  - Tumour lysis syndrome [Unknown]
  - Metastatic neoplasm [Unknown]
